FAERS Safety Report 19108819 (Version 2)
Quarter: 2021Q2

REPORT INFORMATION
  Report Type: Spontaneous
  Country: BR (occurrence: BR)
  Receive Date: 20210408
  Receipt Date: 20210426
  Transmission Date: 20210717
  Serious: Yes (Life-Threatening, Other)
  Sender: FDA-Public Use
  Company Number: BR-ASTRAZENECA-2021A275446

PATIENT
  Sex: Female

DRUGS (1)
  1. SYMBICORT [Suspect]
     Active Substance: BUDESONIDE\FORMOTEROL FUMARATE DIHYDRATE
     Dosage: 320/4.5 MCG; FREQUENCY UNKNOWN UNKNOWN
     Route: 055

REACTIONS (4)
  - Illness [Recovered/Resolved]
  - Asthmatic crisis [Not Recovered/Not Resolved]
  - Device occlusion [Unknown]
  - Drug dose omission by device [Recovered/Resolved]

NARRATIVE: CASE EVENT DATE: 20210402
